FAERS Safety Report 23974672 (Version 1)
Quarter: 2024Q2

REPORT INFORMATION
  Report Type: Spontaneous
  Country: US (occurrence: US)
  Receive Date: 20240614
  Receipt Date: 20240614
  Transmission Date: 20240716
  Serious: Yes (Death, Life-Threatening, Other)
  Sender: FDA-Public Use
  Company Number: US-BoehringerIngelheim-2024-BI-033742

PATIENT
  Age: 66 Year
  Sex: Male

DRUGS (1)
  1. DABIGATRAN [Suspect]
     Active Substance: DABIGATRAN
     Indication: Bronchiectasis
     Route: 048

REACTIONS (6)
  - Death [Fatal]
  - Haemoptysis [Recovered/Resolved]
  - Haemoptysis [Unknown]
  - Agonal respiration [Unknown]
  - Condition aggravated [Unknown]
  - Hypotension [Unknown]
